FAERS Safety Report 9137508 (Version 2)
Quarter: 2013Q1

REPORT INFORMATION
  Report Type: Spontaneous
  Country: AU (occurrence: AU)
  Receive Date: 20130304
  Receipt Date: 20130315
  Transmission Date: 20140127
  Serious: Yes (Other)
  Sender: FDA-Public Use
  Company Number: PHHY2013AU020927

PATIENT
  Sex: Female

DRUGS (3)
  1. ACLASTA [Suspect]
     Dosage: UNK
     Route: 042
     Dates: start: 20100511
  2. ACLASTA [Suspect]
     Dosage: UNK
     Route: 042
     Dates: start: 20111206
  3. ACLASTA [Suspect]
     Dosage: UNK
     Route: 042
     Dates: start: 20130301

REACTIONS (3)
  - Rib fracture [Recovered/Resolved]
  - Rib deformity [Unknown]
  - Spinal fracture [Unknown]
